FAERS Safety Report 9913854 (Version 1)
Quarter: 2014Q1

REPORT INFORMATION
  Report Type: Spontaneous
  Country: US (occurrence: None)
  Receive Date: 20140212
  Receipt Date: 20140212
  Transmission Date: 20141002
  Serious: Yes (Death)
  Sender: FDA-Public Use
  Company Number: AUR-APL-2014-00745

PATIENT
  Age: 69 Year
  Sex: Female

DRUGS (6)
  1. ATENOLOL [Suspect]
  2. CITALOPRAM(CITALOPRAM) [Suspect]
  3. POTASSIUM CHLORIDE [Suspect]
     Route: 048
  4. WARFARIN [Suspect]
     Route: 048
  5. GLIMEPIRIDE [Suspect]
  6. DIAZEPAM [Suspect]

REACTIONS (3)
  - Completed suicide [None]
  - Toxicity to various agents [None]
  - Exposure via ingestion [None]
